FAERS Safety Report 5693465-9 (Version None)
Quarter: 2008Q2

REPORT INFORMATION
  Report Type: 
  Country: None (occurrence: None)
  Receive Date: 20080401
  Receipt Date: 20080401
  Transmission Date: 20081010
  Serious: Yes (Other)
  Sender: FDA-Public Use
  Company Number: None

PATIENT

DRUGS (1)
  1. VIAGRA [Suspect]
     Dates: start: 19990101

REACTIONS (4)
  - HYPOACUSIS [None]
  - MACULOPATHY [None]
  - SCOTOMA [None]
  - TINNITUS [None]
